FAERS Safety Report 22121700 (Version 1)
Quarter: 2023Q1

REPORT INFORMATION
  Report Type: Spontaneous
  Country: US (occurrence: None)
  Receive Date: 20230321
  Receipt Date: 20230321
  Transmission Date: 20230418
  Serious: No
  Sender: FDA-Public Use
  Company Number: None

PATIENT
  Age: 41 Year
  Sex: Female

DRUGS (1)
  1. XELJANZ XR [Suspect]
     Active Substance: TOFACITINIB CITRATE
     Indication: Ankylosing spondylitis
     Dosage: TAKE 1 TABLET BY MOUTH DAILY  AS DIRECTED        ?
     Route: 048
     Dates: start: 202302

REACTIONS (2)
  - Sinusitis [None]
  - Therapy interrupted [None]
